FAERS Safety Report 11010908 (Version 1)
Quarter: 2015Q2

REPORT INFORMATION
  Report Type: Spontaneous
  Country: CN (occurrence: CN)
  Receive Date: 20150410
  Receipt Date: 20150410
  Transmission Date: 20150821
  Serious: Yes (Hospitalization)
  Sender: FDA-Public Use
  Company Number: CN-MYLANLABS-2015M1011774

PATIENT

DRUGS (7)
  1. VANCOMYCIN INJECTION, USP [Suspect]
     Active Substance: VANCOMYCIN
     Indication: PNEUMONIA
     Route: 041
  2. DEXAMETHASONE. [Concomitant]
     Active Substance: DEXAMETHASONE
     Dosage: FROM D 6
     Route: 065
  3. CEFEPIME [Suspect]
     Active Substance: CEFEPIME\CEFEPIME HYDROCHLORIDE
     Indication: PNEUMONIA
     Dosage: 2 [UNIT NOT STATED] TWICE DAILY
     Route: 065
  4. AZITHROMYCIN [Concomitant]
     Active Substance: AZITHROMYCIN ANHYDROUS
     Indication: PNEUMONIA
     Dosage: 0.5 [UNIT NOT STATED] ON D1-4
     Route: 065
  5. CETIRIZINE [Concomitant]
     Active Substance: CETIRIZINE HYDROCHLORIDE
     Dosage: ON DAYS 5-7
     Route: 048
  6. CEFMINOX [Suspect]
     Active Substance: CEFMINOX SODIUM
     Indication: PNEUMONIA
     Dosage: 2G TWICE DAILY ON D1-4
     Route: 065
  7. INDOMETACIN [Concomitant]
     Active Substance: INDOMETHACIN
     Indication: HYPERTHERMIA
     Dosage: 1/2 A TABLET
     Route: 065

REACTIONS (3)
  - Traumatic lung injury [Unknown]
  - Pruritus [Unknown]
  - Rash [Unknown]
